FAERS Safety Report 19483547 (Version 2)
Quarter: 2022Q2

REPORT INFORMATION
  Report Type: Spontaneous
  Country: US (occurrence: US)
  Receive Date: 20210701
  Receipt Date: 20220406
  Transmission Date: 20220721
  Serious: No
  Sender: FDA-Public Use
  Company Number: US-PFIZER INC-2021739738

PATIENT
  Age: 78 Year
  Sex: Female
  Weight: 54.875 kg

DRUGS (1)
  1. IBRANCE [Suspect]
     Active Substance: PALBOCICLIB
     Dosage: 125 MG,UNK
     Dates: start: 202105

REACTIONS (2)
  - Neoplasm progression [Unknown]
  - Feeling abnormal [Recovering/Resolving]
